FAERS Safety Report 7098970-9 (Version None)
Quarter: 2010Q4

REPORT INFORMATION
  Report Type: 
  Country: None (occurrence: None)
  Receive Date: 20101112
  Receipt Date: 20101108
  Transmission Date: 20110411
  Serious: Yes (Other)
  Sender: FDA-Public Use
  Company Number: US-BAYER-201040373NA

PATIENT
  Age: 24 Year
  Sex: Female

DRUGS (2)
  1. MIRENA [Suspect]
     Indication: CONTRACEPTION
     Dosage: 9 WEEKS POST PARTUM
     Route: 015
     Dates: start: 20101027, end: 20101027
  2. MIRENA [Suspect]
     Dosage: 9 WEEKS POST PARTUM
     Route: 015
     Dates: start: 20101027, end: 20101027

REACTIONS (1)
  - UTERINE PERFORATION [None]
